FAERS Safety Report 8575735 (Version 2)
Quarter: 2014Q1

REPORT INFORMATION
  Report Type: Spontaneous
  Country: US (occurrence: None)
  Receive Date: 20120323
  Receipt Date: 20130305
  Transmission Date: 20141002
  Serious: Yes (Hospitalization, Other)
  Sender: FDA-Public Use
  Company Number: 163-21880-11081253

PATIENT
  Age: 60 Year
  Sex: Female
  Weight: 58.06 kg

DRUGS (12)
  1. REVLIMID [Suspect]
     Indication: PLASMA CELL MYELOMA
     Dosage: 10 MG, DAILY X 21 DAYS, PO
     Route: 048
     Dates: start: 20110330, end: 2011
  2. VELCADE (BORTEZOMIB) [Suspect]
     Indication: PRODUCT USED FOR UNKNOWN INDICATION
     Dosage: 1.3 UG/M2, DYS 1,4,8,11, SC
     Route: 058
     Dates: start: 201110
  3. MELPHAN [Concomitant]
  4. PREDNISONE [Concomitant]
  5. DEXAMETHASONE [Concomitant]
  6. ADVIL (IBUPROFEN) [Concomitant]
  7. EXCEDERIN [Concomitant]
  8. LORAZEPAM [Concomitant]
  9. METOPROLOL [Concomitant]
  10. ACYCLOVIR (ACICLOVIR) (ACICLOVIR) [Concomitant]
  11. NEURONTIN (GABAPENTIN) [Concomitant]
  12. ZOFRAN(ONDANSETRON HYDROCHLORIDE) [Concomitant]

REACTIONS (5)
  - Neutropenia [None]
  - Plasma cell myeloma [None]
  - Tooth abscess [None]
  - Plasma cell myeloma [None]
  - Neuropathy peripheral [None]
